FAERS Safety Report 18750113 (Version 2)
Quarter: 2021Q1

REPORT INFORMATION
  Report Type: Spontaneous
  Country: US (occurrence: US)
  Receive Date: 20210118
  Receipt Date: 20210209
  Transmission Date: 20210419
  Serious: Yes (Death, Hospitalization)
  Sender: FDA-Public Use
  Company Number: US-CELLTRION INC.-2021US000301

PATIENT

DRUGS (12)
  1. ENOXAPARIN [Concomitant]
     Active Substance: ENOXAPARIN
     Dosage: 1 MG/KG, DAILY
  2. METHYLPREDNISOLONE. [Concomitant]
     Active Substance: METHYLPREDNISOLONE
     Dosage: 50 MG, BID
  3. PREDNISONE. [Concomitant]
     Active Substance: PREDNISONE
     Indication: PNEUMONITIS
     Dosage: 1?2 MG/KG/DAY OR MORE
  4. IPRATROPIUM/ALBUTEROL [Concomitant]
     Active Substance: ALBUTEROL\IPRATROPIUM
     Dosage: 3 ML, TID
  5. NYSTATIN. [Concomitant]
     Active Substance: NYSTATIN
     Dosage: 500K UNITS 4X DAILY SWISH AND SWALLOW
  6. REMICADE [Suspect]
     Active Substance: INFLIXIMAB
     Indication: PNEUMONITIS
     Dosage: ONE DOSE (5MG/KG)
     Route: 042
     Dates: start: 20161123, end: 20161123
  7. SULFASALAZINE. [Concomitant]
     Active Substance: SULFASALAZINE
     Dosage: 500 MG, DAILY
  8. ASPIRIN [ACETYLSALICYLIC ACID] [Concomitant]
     Active Substance: ASPIRIN
     Dosage: 81 MG, DAILY
  9. TMP?SMX [Concomitant]
     Active Substance: SULFAMETHOXAZOLE\TRIMETHOPRIM
     Dosage: 1 TABLET DAILY ON M/W/F
  10. INFLIXIMAB (UNKNOWN) [Suspect]
     Active Substance: INFLIXIMAB
     Indication: PNEUMONITIS
  11. ATORVASTATIN [Concomitant]
     Active Substance: ATORVASTATIN
     Dosage: 80 MG, DAILY
  12. CYANOCOBALAMIN. [Concomitant]
     Active Substance: CYANOCOBALAMIN
     Dosage: 1000 MCG, DAILY

REACTIONS (3)
  - Respiratory failure [Fatal]
  - Off label use [Unknown]
  - Pneumonitis [Fatal]
